FAERS Safety Report 7993335-7 (Version None)
Quarter: 2011Q4

REPORT INFORMATION
  Report Type: 
  Country: None (occurrence: None)
  Receive Date: 20111219
  Receipt Date: 20110729
  Transmission Date: 20120403
  Serious: No
  Sender: FDA-Public Use
  Company Number: US-ASTRAZENECA-2008UW00791

PATIENT
  Age: 73 Year
  Sex: Male
  Weight: 95.3 kg

DRUGS (9)
  1. CRESTOR [Suspect]
     Route: 048
     Dates: start: 20071101
  2. CRESTOR [Suspect]
     Dosage: HALF TABLET
     Route: 048
     Dates: start: 20091201
  3. CRESTOR [Suspect]
     Route: 048
     Dates: start: 20091201, end: 20110601
  4. CRESTOR [Suspect]
     Dosage: 3/4 TABLET
     Route: 048
     Dates: start: 20091201
  5. ASPIRIN [Concomitant]
  6. FOLIC ACID [Concomitant]
  7. LISINOPRIL [Concomitant]
  8. RED RICE YEAST [Concomitant]
  9. FISH OIL [Concomitant]

REACTIONS (3)
  - MUSCULAR WEAKNESS [None]
  - MYALGIA [None]
  - DRUG DOSE OMISSION [None]
